FAERS Safety Report 7946158-9 (Version None)
Quarter: 2011Q4

REPORT INFORMATION
  Report Type: 
  Country: None (occurrence: None)
  Receive Date: 20111129
  Receipt Date: 20111122
  Transmission Date: 20120403
  Serious: Yes (Hospitalization)
  Sender: FDA-Public Use
  Company Number: JP-GLAXOSMITHKLINE-B0760030A

PATIENT
  Sex: Male

DRUGS (9)
  1. GASMOTIN [Concomitant]
     Route: 048
  2. LITHIUM CARBONATE [Concomitant]
     Route: 048
  3. LAMICTAL [Suspect]
     Dosage: 50MG PER DAY
     Route: 048
     Dates: start: 20111010, end: 20111023
  4. LAMICTAL [Suspect]
     Dosage: 100MG PER DAY
     Route: 048
     Dates: start: 20111024, end: 20111101
  5. MIRTAZAPINE [Concomitant]
     Route: 048
  6. ZYPREXA [Concomitant]
     Route: 048
  7. LAMICTAL [Suspect]
     Indication: BIPOLAR DISORDER
     Dosage: 25MG PER DAY
     Route: 048
     Dates: start: 20110926, end: 20111009
  8. CLONAZEPAM [Concomitant]
     Indication: BIPOLAR I DISORDER
     Dosage: .5MG PER DAY
     Route: 048
     Dates: start: 20081201
  9. MUCODYNE [Concomitant]
     Route: 048

REACTIONS (15)
  - ORAL MUCOSA EROSION [None]
  - ALANINE AMINOTRANSFERASE INCREASED [None]
  - NEUTROPHIL PERCENTAGE INCREASED [None]
  - ASPARTATE AMINOTRANSFERASE INCREASED [None]
  - LYMPHOCYTIC INFILTRATION [None]
  - HYPERTHERMIA [None]
  - OCULAR HYPERAEMIA [None]
  - LIP EROSION [None]
  - WHITE BLOOD CELL COUNT INCREASED [None]
  - STEVENS-JOHNSON SYNDROME [None]
  - GENERALISED ERYTHEMA [None]
  - LYMPHOCYTE PERCENTAGE DECREASED [None]
  - EYE DISCHARGE [None]
  - SKIN EROSION [None]
  - SCAB [None]
